FAERS Safety Report 18413787 (Version 2)
Quarter: 2022Q1

REPORT INFORMATION
  Report Type: Spontaneous
  Country: US (occurrence: US)
  Receive Date: 20201022
  Receipt Date: 20220210
  Transmission Date: 20220423
  Serious: Yes (Hospitalization)
  Sender: FDA-Public Use
  Company Number: US-BIOGEN-2020BI00936728

PATIENT
  Age: 56 Year
  Sex: Female

DRUGS (3)
  1. TECFIDERA [Suspect]
     Active Substance: DIMETHYL FUMARATE
     Indication: Multiple sclerosis
     Route: 065
     Dates: start: 20150101
  2. BUSPAR [Suspect]
     Active Substance: BUSPIRONE HYDROCHLORIDE
     Indication: Anxiety
     Route: 065
     Dates: start: 202010, end: 202010
  3. Estriodol [Concomitant]
     Indication: Product used for unknown indication
     Route: 065

REACTIONS (8)
  - Hallucination, auditory [Unknown]
  - Feeling abnormal [Unknown]
  - Anxiety [Unknown]
  - Cystitis [Unknown]
  - Multiple sclerosis [Unknown]
  - Somnolence [Recovered/Resolved]
  - Cerebral disorder [Recovered/Resolved]
  - Blepharospasm [Recovered/Resolved]

NARRATIVE: CASE EVENT DATE: 20201001
